FAERS Safety Report 12954170 (Version 1)
Quarter: 2016Q4

REPORT INFORMATION
  Report Type: Spontaneous
  Country: US (occurrence: US)
  Receive Date: 20161118
  Receipt Date: 20161118
  Transmission Date: 20170207
  Serious: No
  Sender: FDA-Public Use
  Company Number: US-JNJFOC-20161110778

PATIENT
  Age: 73 Year
  Sex: Male
  Weight: 62.14 kg

DRUGS (4)
  1. ZYRTEC [Suspect]
     Active Substance: CETIRIZINE HYDROCHLORIDE
     Indication: HYPERSENSITIVITY
     Dosage: HALF IN THE MORNING AND HALF AT NIGHT
     Route: 048
  2. SIMVASTATIN. [Concomitant]
     Active Substance: SIMVASTATIN
     Indication: BLOOD CHOLESTEROL INCREASED
     Route: 065
  3. METOPROLOL. [Concomitant]
     Active Substance: METOPROLOL
     Indication: HYPERTENSION
     Route: 065
  4. ZYRTEC [Suspect]
     Active Substance: CETIRIZINE HYDROCHLORIDE
     Indication: HYPERSENSITIVITY
     Dosage: 1 WHOLE TABLET
     Route: 048

REACTIONS (5)
  - Dehydration [Recovered/Resolved]
  - Drug administration error [Unknown]
  - Product quality issue [Unknown]
  - Sinus disorder [Recovered/Resolved]
  - Dry mouth [Recovered/Resolved]
